FAERS Safety Report 21310951 (Version 1)
Quarter: 2022Q3

REPORT INFORMATION
  Report Type: Spontaneous
  Country: US (occurrence: None)
  Receive Date: 20220909
  Receipt Date: 20220909
  Transmission Date: 20221027
  Serious: No
  Sender: FDA-Public Use
  Company Number: US-ARIS GLOBAL-202112-2261

PATIENT
  Sex: Female

DRUGS (6)
  1. OXERVATE [Suspect]
     Active Substance: CENEGERMIN-BKBJ
     Indication: Neurotrophic keratopathy
     Route: 047
     Dates: start: 20211206
  2. OXERVATE [Suspect]
     Active Substance: CENEGERMIN-BKBJ
     Indication: Hypoaesthesia eye
  3. PROBIOTIC 10B CELL [Concomitant]
  4. LISINOPRIL [Concomitant]
     Active Substance: LISINOPRIL
  5. DICLOFENAC [Concomitant]
     Active Substance: DICLOFENAC
  6. HUMIRA(CF) [Concomitant]
     Dosage: 10 MG/0.1 ML SYRINGE KIT

REACTIONS (2)
  - Accidental overdose [Unknown]
  - Device use issue [Unknown]
